FAERS Safety Report 8904680 (Version 1)
Quarter: 2012Q4

REPORT INFORMATION
  Report Type: 
  Country: US (occurrence: US)
  Receive Date: 20121113
  Receipt Date: 20121113
  Transmission Date: 20130627
  Serious: No
  Sender: FDA-Public Use
  Company Number: US-GLAXOSMITHKLINE-A0961790A

PATIENT
  Age: 65 Year
  Sex: Female

DRUGS (14)
  1. CARVEDILOL [Suspect]
     Indication: CARDIAC FAILURE CONGESTIVE
     Dosage: 25MG Twice per day
     Route: 048
     Dates: start: 2009
  2. LEVOTHYROXIN [Concomitant]
  3. METFORMIN [Concomitant]
  4. ASPIRIN [Concomitant]
  5. BENAZAPRIL [Concomitant]
  6. FUROSEMIDE [Concomitant]
  7. LIPITOR [Concomitant]
  8. LORAZEPAM [Concomitant]
  9. BUSPIRONE [Concomitant]
  10. B12 [Concomitant]
  11. FERREX [Concomitant]
  12. MULTIVITAMIN [Concomitant]
  13. MULTIMINERAL [Concomitant]
  14. CLARITIN [Concomitant]

REACTIONS (2)
  - Drug ineffective [Recovered/Resolved]
  - Fluid retention [Unknown]
